FAERS Safety Report 6965239-X (Version None)
Quarter: 2010Q3

REPORT INFORMATION
  Report Type: 
  Country: None (occurrence: None)
  Receive Date: 20100903
  Receipt Date: 20100827
  Transmission Date: 20110219
  Serious: Yes (Death, Life-Threatening, Hospitalization)
  Sender: FDA-Public Use
  Company Number: PHHY2010EC57772

PATIENT
  Age: 55 Year
  Sex: Female

DRUGS (1)
  1. ZOLEDRONIC [Suspect]
     Indication: OSTEOPOROSIS
     Dosage: 5 MG
     Dates: start: 20100823

REACTIONS (5)
  - FALL [None]
  - MYALGIA [None]
  - NON-CARDIAC CHEST PAIN [None]
  - PYREXIA [None]
  - SUDDEN DEATH [None]
